FAERS Safety Report 6636229-1 (Version None)
Quarter: 2010Q1

REPORT INFORMATION
  Report Type: 
  Country: None (occurrence: None)
  Receive Date: 20100316
  Receipt Date: 20100304
  Transmission Date: 20100710
  Serious: Yes (Other)
  Sender: FDA-Public Use
  Company Number: JP-PFIZER INC-2010030366

PATIENT
  Age: 80 Year
  Sex: Female

DRUGS (1)
  1. ZITHROMAC SR [Suspect]
     Indication: BRONCHITIS
     Dosage: 2000 MG, 1X/DAY
     Route: 048
     Dates: start: 20100212, end: 20100212

REACTIONS (3)
  - CHEILITIS [None]
  - GLOSSITIS [None]
  - OROPHARYNGEAL BLISTERING [None]
